FAERS Safety Report 14526082 (Version 1)
Quarter: 2018Q1

REPORT INFORMATION
  Report Type: Spontaneous
  Country: PL (occurrence: PL)
  Receive Date: 20180213
  Receipt Date: 20180213
  Transmission Date: 20180509
  Serious: Yes (Death, Other)
  Sender: FDA-Public Use
  Company Number: PL-MYLANLABS-2018M1009158

PATIENT
  Age: 61 Year
  Sex: Male

DRUGS (4)
  1. TEMOZOLOMIDE. [Suspect]
     Active Substance: TEMOZOLOMIDE
     Indication: ACTH-PRODUCING PITUITARY TUMOUR
     Dosage: 150-200MG/M2 DAILY IN MORNING FOR 5 DAYS
     Dates: start: 201504, end: 201512
  2. TEMOZOLOMIDE. [Suspect]
     Active Substance: TEMOZOLOMIDE
     Indication: PITUITARY TUMOUR BENIGN
     Dosage: 320 MG, QD
     Dates: start: 201504, end: 201512
  3. TRIMETHOPRIM. [Concomitant]
     Active Substance: TRIMETHOPRIM
     Indication: PRODUCT USED FOR UNKNOWN INDICATION
  4. ONDANSETRON [Concomitant]
     Active Substance: ONDANSETRON
     Indication: PRODUCT USED FOR UNKNOWN INDICATION

REACTIONS (6)
  - Off label use [Unknown]
  - Pituitary-dependent Cushing^s syndrome [Fatal]
  - Nausea [Unknown]
  - Deafness [Unknown]
  - Disease progression [Fatal]
  - Death [Fatal]

NARRATIVE: CASE EVENT DATE: 201602
